FAERS Safety Report 10239723 (Version 3)
Quarter: 2014Q4

REPORT INFORMATION
  Report Type: Spontaneous
  Country: JP (occurrence: JP)
  Receive Date: 20140616
  Receipt Date: 20141017
  Transmission Date: 20150528
  Serious: Yes (Hospitalization, Other)
  Sender: FDA-Public Use
  Company Number: JP-ASTRAZENECA-2014SE44164

PATIENT
  Age: 23861 Day
  Sex: Male

DRUGS (22)
  1. MEROPEN [Suspect]
     Active Substance: MEROPENEM
     Indication: MENINGITIS BACTERIAL
     Route: 042
     Dates: start: 20140227, end: 20140327
  2. ALPINY [Concomitant]
     Active Substance: ACETAMINOPHEN
     Dates: start: 20140115, end: 20140119
  3. DEXART [Concomitant]
     Active Substance: DEXAMETHASONE SODIUM PHOSPHATE
     Dates: start: 20131231, end: 20140103
  4. FAMOTIDINE. [Concomitant]
     Active Substance: FAMOTIDINE
     Dates: start: 20140101, end: 20140121
  5. RISPERDAL [Concomitant]
     Active Substance: RISPERIDONE
     Route: 048
     Dates: start: 20140101, end: 20140103
  6. VITAMEDIN ORAL [Concomitant]
     Route: 048
     Dates: start: 20140125
  7. VITAMEDIN ORAL [Concomitant]
     Route: 048
     Dates: start: 20140108, end: 20140109
  8. REMINARON [Concomitant]
     Active Substance: GABEXATE MESYLATE
     Route: 048
     Dates: start: 20140102, end: 20140106
  9. LENDORMIN D [Concomitant]
     Active Substance: BROTIZOLAM
     Route: 048
     Dates: start: 20140102
  10. FLUMAZENIL. [Concomitant]
     Active Substance: FLUMAZENIL
     Dates: start: 20140122, end: 20140122
  11. CALONAL [Concomitant]
     Active Substance: ACETAMINOPHEN
     Route: 048
     Dates: start: 20140119
  12. DORMICUM [Concomitant]
     Active Substance: MIDAZOLAM\MIDAZOLAM HYDROCHLORIDE
     Dates: start: 20140122, end: 20140122
  13. VITAMEDIN [Concomitant]
     Active Substance: CYANOCOBALAMIN\PYRIDOXINE HYDROCHLORIDE\THIAMINE
     Route: 042
     Dates: start: 20140108, end: 20140109
  14. MEROPEN [Suspect]
     Active Substance: MEROPENEM
     Indication: MENINGITIS BACTERIAL
     Route: 042
     Dates: start: 20130131, end: 20140130
  15. LECICARBON [Concomitant]
     Active Substance: SODIUM BICARBONATE\SODIUM PHOSPHATE, MONOBASIC
     Dosage: AS REQUIRED
     Dates: start: 20140114
  16. DORMICUM [Concomitant]
     Active Substance: MIDAZOLAM\MIDAZOLAM HYDROCHLORIDE
     Dates: start: 20140115, end: 20140115
  17. DORMICUM [Concomitant]
     Active Substance: MIDAZOLAM\MIDAZOLAM HYDROCHLORIDE
     Dates: start: 20140129, end: 20140129
  18. FLUMAZENIL. [Concomitant]
     Active Substance: FLUMAZENIL
     Route: 042
     Dates: start: 20140115, end: 20140115
  19. FLUMAZENIL. [Concomitant]
     Active Substance: FLUMAZENIL
     Dates: start: 20140129, end: 20140129
  20. FOLIAMIN [Concomitant]
     Active Substance: FOLIC ACID
     Route: 048
     Dates: start: 20140228
  21. PURSENNID [Concomitant]
     Active Substance: SENNOSIDES A AND B
     Route: 048
     Dates: start: 20140312
  22. GLUCOSE [Concomitant]
     Active Substance: DEXTROSE
     Dates: start: 20140106, end: 20140116

REACTIONS (7)
  - Hypernatraemia [Recovered/Resolved]
  - Cerebral infarction [Recovering/Resolving]
  - Hemiplegia [Unknown]
  - Dehydration [Unknown]
  - Pyrexia [Recovering/Resolving]
  - Prerenal failure [Unknown]
  - Disseminated intravascular coagulation [Recovered/Resolved]

NARRATIVE: CASE EVENT DATE: 20140101
